FAERS Safety Report 6171303-8 (Version None)
Quarter: 2009Q2

REPORT INFORMATION
  Report Type: 
  Country: None (occurrence: None)
  Receive Date: 20090428
  Receipt Date: 20090428
  Transmission Date: 20091009
  Serious: No
  Sender: FDA-Public Use
  Company Number: None

PATIENT
  Age: 34 Year
  Sex: Female
  Weight: 68.9467 kg

DRUGS (1)
  1. MIRENA [Suspect]
     Indication: CONTRACEPTION
     Dates: start: 20040301, end: 20090423

REACTIONS (7)
  - ACNE [None]
  - ANXIETY [None]
  - DEPRESSION [None]
  - HEADACHE [None]
  - PARAESTHESIA [None]
  - SINUSITIS [None]
  - WEIGHT INCREASED [None]
